FAERS Safety Report 6748132-7 (Version None)
Quarter: 2010Q2

REPORT INFORMATION
  Report Type: 
  Country: None (occurrence: None)
  Receive Date: 20100531
  Receipt Date: 20100524
  Transmission Date: 20101027
  Serious: No
  Sender: FDA-Public Use
  Company Number: JP-JNJFOC-20100509917

PATIENT

DRUGS (1)
  1. DUROTEP MT PATCH [Suspect]
     Indication: PAIN
     Route: 062

REACTIONS (1)
  - DRUG PRESCRIBING ERROR [None]
